FAERS Safety Report 8882278 (Version 1)
Quarter: 2012Q4

REPORT INFORMATION
  Report Type: 
  Country: US (occurrence: US)
  Receive Date: 20121102
  Receipt Date: 20121102
  Transmission Date: 20130627
  Serious: Yes (Other)
  Sender: FDA-Public Use
  Company Number: US-PFIZER INC-2009256506

PATIENT
  Sex: Female

DRUGS (2)
  1. LIPITOR [Suspect]
     Dosage: UNK
  2. CADUET [Suspect]
     Indication: HIGH CHOLESTEROL
     Dosage: 40 mg, UNK

REACTIONS (3)
  - Hypoacusis [Unknown]
  - Ear infection [Recovering/Resolving]
  - Drug intolerance [Unknown]
